FAERS Safety Report 12937334 (Version 1)
Quarter: 2016Q4

REPORT INFORMATION
  Report Type: Spontaneous
  Country: US (occurrence: US)
  Receive Date: 20161114
  Receipt Date: 20161114
  Transmission Date: 20170207
  Serious: No
  Sender: FDA-Public Use
  Company Number: US-PFIZER INC-2016527895

PATIENT
  Age: 61 Year
  Sex: Female

DRUGS (9)
  1. LYRICA [Suspect]
     Active Substance: PREGABALIN
  2. SODIUM SULAMYD [Suspect]
     Active Substance: SULFACETAMIDE SODIUM
     Dosage: UNK
  3. LEVOFLOXACIN. [Suspect]
     Active Substance: LEVOFLOXACIN
     Dosage: UNK
  4. AMOXICILLIN. [Suspect]
     Active Substance: AMOXICILLIN
  5. BLEPH-10 [Suspect]
     Active Substance: SULFACETAMIDE SODIUM
  6. GABAPENTIN. [Suspect]
     Active Substance: GABAPENTIN
     Dosage: UNK
  7. CIPRO [Suspect]
     Active Substance: CIPROFLOXACIN HYDROCHLORIDE
  8. ED BRON GP [Suspect]
     Active Substance: GUAIFENESIN\PHENYLEPHRINE
     Dosage: UNK
  9. PROCAINE [Suspect]
     Active Substance: PROCAINE

REACTIONS (1)
  - Drug hypersensitivity [Unknown]
